FAERS Safety Report 10491784 (Version 5)
Quarter: 2016Q4

REPORT INFORMATION
  Report Type: Spontaneous
  Country: US (occurrence: US)
  Receive Date: 20141002
  Receipt Date: 20161101
  Transmission Date: 20170206
  Serious: Yes (Hospitalization, Other)
  Sender: FDA-Public Use
  Company Number: US-GLAXOSMITHKLINE-A1059469A

PATIENT
  Age: 85 Year
  Sex: Female

DRUGS (4)
  1. ADVAIR HFA [Suspect]
     Active Substance: FLUTICASONE PROPIONATE\SALMETEROL XINAFOATE
     Indication: CHRONIC OBSTRUCTIVE PULMONARY DISEASE
  2. ALBUTEROL INHALER [Concomitant]
     Active Substance: ALBUTEROL
  3. ADVAIR HFA [Suspect]
     Active Substance: FLUTICASONE PROPIONATE\SALMETEROL XINAFOATE
     Indication: EMPHYSEMA
  4. ADVAIR HFA [Suspect]
     Active Substance: FLUTICASONE PROPIONATE\SALMETEROL XINAFOATE
     Indication: DYSPNOEA
     Dosage: 1 PUFF(S), BID
     Route: 065
     Dates: start: 20130919

REACTIONS (16)
  - Tremor [Unknown]
  - Ill-defined disorder [Unknown]
  - Cardiac disorder [Recovering/Resolving]
  - Heart rate increased [Unknown]
  - Hospitalisation [Unknown]
  - Pneumonia [Recovered/Resolved]
  - Hypersensitivity [Unknown]
  - Stent placement [Unknown]
  - Bronchitis [Recovered/Resolved]
  - Asthma [Unknown]
  - Cardiac pacemaker insertion [Unknown]
  - Cardiac operation [Unknown]
  - Hyperhidrosis [Unknown]
  - Heart valve stenosis [Unknown]
  - Nervousness [Unknown]
  - Malaise [Unknown]

NARRATIVE: CASE EVENT DATE: 201412
